FAERS Safety Report 6479817-8 (Version None)
Quarter: 2009Q4

REPORT INFORMATION
  Report Type: 
  Country: None (occurrence: None)
  Receive Date: 20091202
  Receipt Date: 20091116
  Transmission Date: 20100525
  Serious: Yes (Hospitalization)
  Sender: FDA-Public Use
  Company Number: 1000010379

PATIENT
  Age: 29 Year
  Sex: Female

DRUGS (5)
  1. ESCITALOPRAM [Suspect]
     Dosage: (640 MG, ONCE), ORAL
     Route: 048
     Dates: start: 20091012, end: 20091012
  2. HYDROXYZINE [Suspect]
     Dosage: (3200 MG, ONCE), ORAL
     Route: 048
     Dates: start: 20091012, end: 20091012
  3. ZOLPIDEM [Suspect]
     Dosage: (120 MG, ONCE), ORAL
     Route: 048
     Dates: start: 20091012, end: 20091012
  4. RIVOTRIL (2 MILLIGRAM) [Suspect]
     Dosage: (14 MG, ONCE), ORAL
     Route: 048
  5. PAROXETINE (20 MILLIGRAM) [Suspect]
     Dosage: (560 MG, ONCE), ORAL
     Route: 048
     Dates: start: 20091012, end: 20091012

REACTIONS (6)
  - CYTOLYTIC HEPATITIS [None]
  - DEPRESSED LEVEL OF CONSCIOUSNESS [None]
  - MULTIPLE DRUG OVERDOSE INTENTIONAL [None]
  - SINUS TACHYCARDIA [None]
  - SOMNOLENCE [None]
  - SUICIDE ATTEMPT [None]
